FAERS Safety Report 23063993 (Version 1)
Quarter: 2023Q4

REPORT INFORMATION
  Report Type: Spontaneous
  Country: CH (occurrence: CH)
  Receive Date: 20231013
  Receipt Date: 20231013
  Transmission Date: 20240110
  Serious: Yes (Other)
  Sender: FDA-Public Use
  Company Number: None

PATIENT
  Age: 62 Year
  Sex: Male

DRUGS (9)
  1. DELSTRIGO [Suspect]
     Active Substance: DORAVIRINE\LAMIVUDINE\TENOFOVIR DISOPROXIL FUMARATE
     Indication: HIV infection
     Dosage: 100/300/245MG
     Route: 048
     Dates: start: 20230131
  2. ANORO ELLIPTA [Concomitant]
     Active Substance: UMECLIDINIUM BROMIDE\VILANTEROL TRIFENATATE
     Indication: Chronic obstructive pulmonary disease
     Dosage: 55MCG/22MCG
     Route: 055
     Dates: start: 20230511
  3. CARVEDILOL [Concomitant]
     Active Substance: CARVEDILOL
     Indication: Varices oesophageal
     Dosage: 6.25 MILLIGRAM
     Route: 048
     Dates: start: 20211206
  4. EUTHYROX [Concomitant]
     Active Substance: LEVOTHYROXINE SODIUM
     Dosage: 100 MICROGRAM
     Route: 048
     Dates: start: 20210331
  5. MAGNESIUM ASPARTATE HYDROCHLORIDE [Concomitant]
     Active Substance: MAGNESIUM ASPARTATE HYDROCHLORIDE
     Indication: Muscle spasms
     Dosage: 7.5 MILLIMOLE
     Route: 048
     Dates: start: 20211012
  6. SULFAMETHOXAZOLE\TRIMETHOPRIM [Concomitant]
     Active Substance: SULFAMETHOXAZOLE\TRIMETHOPRIM
     Dosage: CYCLICAL
     Route: 048
     Dates: start: 20201208
  7. ROSUVASTATIN CALCIUM [Concomitant]
     Active Substance: ROSUVASTATIN CALCIUM
     Indication: Hypercholesterolaemia
     Dosage: 5 MILLIGRAM
     Route: 048
     Dates: start: 20230126
  8. VALSARTAN SPIRIG [Concomitant]
     Indication: Nephroprotective therapy
     Dosage: 40 MILLIGRAM
     Route: 048
     Dates: start: 20230809
  9. CHOLECALCIFEROL [Concomitant]
     Active Substance: CHOLECALCIFEROL
     Dosage: 4000 IE/ML: 2 PIPETTES EVERY DAY
     Dates: start: 20160128

REACTIONS (1)
  - Chronic kidney disease [Unknown]

NARRATIVE: CASE EVENT DATE: 20230711
